FAERS Safety Report 22167072 (Version 1)
Quarter: 2023Q2

REPORT INFORMATION
  Report Type: Spontaneous
  Country: US (occurrence: None)
  Receive Date: 20230402
  Receipt Date: 20230402
  Transmission Date: 20230721
  Serious: No
  Sender: FDA-Public Use
  Company Number: None

PATIENT
  Age: 75 Year
  Sex: Female
  Weight: 61.2 kg

DRUGS (14)
  1. CHLORTHALIDONE [Suspect]
     Active Substance: CHLORTHALIDONE
     Indication: Hypertension
     Dosage: OTHER QUANTITY : 1 TABLET(S);?
     Route: 048
  2. TRAMADOL [Concomitant]
     Active Substance: TRAMADOL
  3. NORCO [Concomitant]
     Active Substance: ACETAMINOPHEN\HYDROCODONE BITARTRATE
  4. LISINOPRIL [Concomitant]
     Active Substance: LISINOPRIL
  5. LIDOCAINE [Concomitant]
     Active Substance: LIDOCAINE
  6. RESTASIS [Concomitant]
     Active Substance: CYCLOSPORINE
  7. FAMOTIDINE [Concomitant]
     Active Substance: FAMOTIDINE
  8. ASPIRIN [Concomitant]
     Active Substance: ASPIRIN
  9. ALTERIL [Concomitant]
  10. FISH OIL [Concomitant]
     Active Substance: FISH OIL
  11. DOCUSATE [Concomitant]
     Active Substance: DOCUSATE
  12. MAGNESIUN [Concomitant]
  13. VITAMIN C [Concomitant]
     Active Substance: ASCORBIC ACID
  14. WOMEN^S OVER 50 MULTIVITS [Concomitant]

REACTIONS (1)
  - Supraventricular tachycardia [None]

NARRATIVE: CASE EVENT DATE: 20230203
